FAERS Safety Report 4771198-0 (Version None)
Quarter: 2005Q3

REPORT INFORMATION
  Report Type: 
  Country: None (occurrence: None)
  Receive Date: 20050914
  Receipt Date: 20050830
  Transmission Date: 20060218
  Serious: Yes (Death)
  Sender: FDA-Public Use
  Company Number: USA0509107166

PATIENT
  Age: 49 Year
  Sex: Female

DRUGS (2)
  1. SYMBYAX [Suspect]
     Indication: DEPRESSION
     Dosage: UNK
     Route: 065
  2. CYMBALTA [Suspect]
     Indication: DEPRESSION
     Dosage: UNK
     Route: 065

REACTIONS (2)
  - COMPLETED SUICIDE [None]
  - TREATMENT NONCOMPLIANCE [None]
